FAERS Safety Report 8267829-3 (Version None)
Quarter: 2012Q2

REPORT INFORMATION
  Report Type: 
  Country: None (occurrence: None)
  Receive Date: 20120404
  Receipt Date: 20120322
  Transmission Date: 20120825
  Serious: Yes (Other)
  Sender: FDA-Public Use
  Company Number: 2012MA004048

PATIENT
  Age: 40 Year
  Sex: Female

DRUGS (6)
  1. AMITRIPTYLINE HYDROCHLORIDE [Concomitant]
  2. ISOTRETINOIN [Suspect]
     Indication: ROSACEA
     Dosage: 35 MG;QD
     Dates: start: 20090901
  3. FERROUS SUL ELX [Suspect]
     Indication: PRODUCT USED FOR UNKNOWN INDICATION
     Dosage: 200 MG;BID;PO
     Route: 048
     Dates: start: 20090101
  4. DESOGESTREL (DESOGESTREL) [Suspect]
     Indication: PRODUCT USED FOR UNKNOWN INDICATION
     Dosage: 1 DF;QD;PO
     Route: 048
     Dates: start: 20090901
  5. NIFEDIPINE [Concomitant]
  6. ANTIBIOTIC NOS [Concomitant]

REACTIONS (6)
  - ERYTHEMA [None]
  - DEPRESSION [None]
  - FEELING ABNORMAL [None]
  - ANXIETY [None]
  - HYPERVENTILATION [None]
  - SYNCOPE [None]
